FAERS Safety Report 4633890-8 (Version None)
Quarter: 2005Q1

REPORT INFORMATION
  Report Type: 
  Country: None (occurrence: None)
  Receive Date: 20050325
  Receipt Date: 20041229
  Transmission Date: 20050727
  Serious: No
  Sender: FDA-Public Use
  Company Number: USA041287158

PATIENT
  Age: 75 Year
  Sex: Female

DRUGS (3)
  1. FORTEO [Suspect]
     Indication: OSTEOPOROSIS
  2. PREDNISONE [Concomitant]
  3. CRESTOR (ATORVASTATIN CALCIUM) [Concomitant]

REACTIONS (1)
  - FEELING ABNORMAL [None]
